FAERS Safety Report 5766973-X (Version None)
Quarter: 2008Q2

REPORT INFORMATION
  Report Type: 
  Country: None (occurrence: None)
  Receive Date: 20080609
  Receipt Date: 20080526
  Transmission Date: 20081010
  Serious: Yes (Hospitalization)
  Sender: FDA-Public Use
  Company Number: 2008BI013596

PATIENT
  Age: 47 Year
  Sex: Female

DRUGS (4)
  1. AVONEX [Suspect]
     Indication: MULTIPLE SCLEROSIS
     Dosage: 30 UG; QW; IM
     Route: 030
     Dates: start: 20060301
  2. SODIUM MYCOPHENOLATE [Concomitant]
  3. LIORESAL [Concomitant]
  4. AMPLICITIL (CHLOPROMAZINE) [Concomitant]

REACTIONS (7)
  - CONDITION AGGRAVATED [None]
  - GAIT DISTURBANCE [None]
  - INFLUENZA [None]
  - MUSCULAR WEAKNESS [None]
  - OPTIC NEURITIS [None]
  - PARAESTHESIA [None]
  - PNEUMONIA [None]
